FAERS Safety Report 23156241 (Version 2)
Quarter: 2023Q4

REPORT INFORMATION
  Report Type: Spontaneous
  Country: US (occurrence: None)
  Receive Date: 20231107
  Receipt Date: 20231220
  Transmission Date: 20240110
  Serious: No
  Sender: FDA-Public Use
  Company Number: US-ROCHE-3215167

PATIENT
  Sex: Female
  Weight: 95.34 kg

DRUGS (1)
  1. CATHFLO ACTIVASE [Suspect]
     Active Substance: ALTEPLASE
     Indication: Complication associated with device
     Dosage: 2MG/2ML AS NEEDED VIA PORT IV
     Route: 042
     Dates: start: 202205

REACTIONS (2)
  - Unevaluable device issue [Unknown]
  - No adverse event [Unknown]
